FAERS Safety Report 14358441 (Version 3)
Quarter: 2020Q2

REPORT INFORMATION
  Report Type: Report from Study
  Country: US (occurrence: US)
  Receive Date: 20180105
  Receipt Date: 20200422
  Transmission Date: 20200713
  Serious: No
  Sender: FDA-Public Use
  Company Number: US-SA-2017SA223569

PATIENT
  Age: 62 Year
  Sex: Female

DRUGS (6)
  1. DUPILUMAB [Suspect]
     Active Substance: DUPILUMAB
     Indication: ECZEMA
  2. DESONIDE. [Suspect]
     Active Substance: DESONIDE
     Indication: SCAB
  3. DESONIDE. [Suspect]
     Active Substance: DESONIDE
     Indication: RASH
     Dosage: UNK UNK,UNK
     Route: 065
  4. DESONIDE. [Suspect]
     Active Substance: DESONIDE
     Indication: BURNING SENSATION
  5. DESONIDE. [Suspect]
     Active Substance: DESONIDE
     Indication: RASH PRURITIC
  6. DUPILUMAB [Suspect]
     Active Substance: DUPILUMAB
     Indication: DERMATITIS ATOPIC
     Dosage: 300 MG, QOW
     Route: 058
     Dates: start: 201708, end: 201712

REACTIONS (8)
  - Rash [Unknown]
  - Rash erythematous [Unknown]
  - Scab [Unknown]
  - Skin burning sensation [Unknown]
  - Conjunctivitis [Unknown]
  - Rash pruritic [Unknown]
  - Condition aggravated [Unknown]
  - Lacrimation increased [Unknown]

NARRATIVE: CASE EVENT DATE: 2017
